FAERS Safety Report 8080226-9 (Version None)
Quarter: 2012Q1

REPORT INFORMATION
  Report Type: 
  Country: None (occurrence: None)
  Receive Date: 20120127
  Receipt Date: 20110310
  Transmission Date: 20120608
  Serious: Yes (Hospitalization)
  Sender: FDA-Public Use
  Company Number: US-ABBOTT-11P-163-0707736-00

PATIENT
  Age: 55 Year
  Sex: Female

DRUGS (5)
  1. ONDANSETRON HCL [Concomitant]
     Indication: DEPRESSION
  2. SYNTHROID [Concomitant]
     Indication: HYPOTHYROIDISM
  3. ATIVAN [Concomitant]
     Indication: ANXIETY
  4. REMERON [Concomitant]
     Indication: DEPRESSION
  5. HUMIRA [Suspect]
     Indication: PRODUCT USED FOR UNKNOWN INDICATION
     Dates: start: 20101201, end: 20110204

REACTIONS (8)
  - UPPER RESPIRATORY TRACT INFECTION [None]
  - TREMOR [None]
  - ABDOMINAL PAIN [None]
  - INJECTION SITE PAIN [None]
  - BACK PAIN [None]
  - PYREXIA [None]
  - COLITIS [None]
  - HEADACHE [None]
